FAERS Safety Report 23659573 (Version 1)
Quarter: 2024Q1

REPORT INFORMATION
  Report Type: Spontaneous
  Country: CN (occurrence: CN)
  Receive Date: 20240321
  Receipt Date: 20240321
  Transmission Date: 20240410
  Serious: Yes (Hospitalization)
  Sender: FDA-Public Use
  Company Number: CN-Merck Healthcare KGaA-2024013649

PATIENT
  Age: 65 Year
  Sex: Male
  Weight: 62 kg

DRUGS (5)
  1. ERBITUX [Suspect]
     Active Substance: CETUXIMAB
     Indication: Hypopharyngeal cancer
     Dosage: 700 MG, SINGLE
     Route: 042
     Dates: start: 20240218, end: 20240218
  2. ERBITUX [Suspect]
     Active Substance: CETUXIMAB
     Dosage: 700 MG, SINGLE
     Route: 042
     Dates: start: 20240225, end: 20240225
  3. GEMCITABINE HYDROCHLORIDE [Suspect]
     Active Substance: GEMCITABINE HYDROCHLORIDE
     Indication: Hypopharyngeal cancer
     Dosage: 1.7 G, DAILY
     Route: 041
     Dates: start: 20240219, end: 20240219
  4. GEMCITABINE HYDROCHLORIDE [Suspect]
     Active Substance: GEMCITABINE HYDROCHLORIDE
     Dosage: 1.7 G, DAILY
     Route: 041
     Dates: start: 20240227, end: 20240227
  5. CISPLATIN [Suspect]
     Active Substance: CISPLATIN
     Indication: Hypopharyngeal cancer
     Dosage: 60 MG, DAILY
     Route: 041
     Dates: start: 20240219, end: 20240220

REACTIONS (1)
  - Myelosuppression [Recovering/Resolving]

NARRATIVE: CASE EVENT DATE: 20240304
